FAERS Safety Report 9519031 (Version 1)
Quarter: 2013Q3

REPORT INFORMATION
  Report Type: Spontaneous
  Country: US (occurrence: None)
  Receive Date: 20130911
  Receipt Date: 20130911
  Transmission Date: 20140515
  Serious: Yes (Other)
  Sender: FDA-Public Use
  Company Number: None

PATIENT
  Age: 78 Year
  Sex: Male
  Weight: 91.63 kg

DRUGS (1)
  1. METFORMIN [Suspect]
     Indication: DIABETES MELLITUS
     Dosage: 1 NX 2 TIMES A DAY
     Dates: start: 20130812, end: 20130906

REACTIONS (3)
  - Nausea [None]
  - Product odour abnormal [None]
  - Product quality issue [None]
